FAERS Safety Report 8659694 (Version 2)
Quarter: 2013Q2

REPORT INFORMATION
  Report Type: Spontaneous
  Country: US (occurrence: US)
  Receive Date: 20120711
  Receipt Date: 20130502
  Transmission Date: 20140414
  Serious: Yes (Congenital Anomaly, Other)
  Sender: FDA-Public Use
  Company Number: US-PFIZER INC-2012163820

PATIENT
  Sex: Female

DRUGS (4)
  1. ZOLOFT [Suspect]
     Indication: DEPRESSION
     Dosage: UNK
     Route: 064
     Dates: start: 1998, end: 2004
  2. SERTRALINE HCL [Suspect]
     Indication: DEPRESSION
     Dosage: UNK
     Route: 064
     Dates: start: 1998, end: 2004
  3. PRENATAL VITAMINS [Concomitant]
     Dosage: UNK
     Route: 064
  4. IRON [Concomitant]
     Dosage: UNK
     Route: 064

REACTIONS (9)
  - Maternal exposure timing unspecified [Unknown]
  - Heart disease congenital [Unknown]
  - Congenital hydrocephalus [Unknown]
  - Skull malformation [Unknown]
  - Intraventricular haemorrhage neonatal [Unknown]
  - Neonatal respiratory distress syndrome [Unknown]
  - Laryngeal stenosis [Unknown]
  - Tracheal stenosis [Unknown]
  - Abnormal behaviour [Unknown]
